FAERS Safety Report 7395404-1 (Version None)
Quarter: 2011Q2

REPORT INFORMATION
  Report Type: 
  Country: None (occurrence: None)
  Receive Date: 20110405
  Receipt Date: 20110331
  Transmission Date: 20111010
  Serious: Yes (Disabling, Other)
  Sender: FDA-Public Use
  Company Number: CH-PFIZER INC-2010116458

PATIENT
  Age: 46 Year
  Sex: Female

DRUGS (1)
  1. LUSTRAL [Suspect]
     Indication: DEPRESSION
     Dosage: 50 MG, 1X/DAY
     Route: 048
     Dates: start: 19960101, end: 19960601

REACTIONS (7)
  - PELVIC DISCOMFORT [None]
  - FEMALE SEXUAL AROUSAL DISORDER [None]
  - PELVIC PAIN [None]
  - SUICIDAL IDEATION [None]
  - VULVOVAGINAL PAIN [None]
  - STRESS [None]
  - ANXIETY [None]
